FAERS Safety Report 10425132 (Version 7)
Quarter: 2014Q4

REPORT INFORMATION
  Report Type: Report from Study
  Country: ES (occurrence: ES)
  Receive Date: 20140902
  Receipt Date: 20141103
  Transmission Date: 20150528
  Serious: Yes (Hospitalization, Other)
  Sender: FDA-Public Use
  Company Number: ES-GLAXOSMITHKLINE-B1028442A

PATIENT
  Age: 57 Year
  Sex: Female
  Weight: 60 kg

DRUGS (2)
  1. TRAMETINIB [Suspect]
     Active Substance: TRAMETINIB
     Indication: METASTATIC MALIGNANT MELANOMA
     Dosage: 2 MG, BID
     Route: 048
     Dates: start: 20140305
  2. DABRAFENIB [Suspect]
     Active Substance: DABRAFENIB
     Indication: METASTATIC MALIGNANT MELANOMA
     Dosage: 150 MG, QD
     Route: 048
     Dates: start: 20140305

REACTIONS (1)
  - Glioblastoma multiforme [Recovered/Resolved]

NARRATIVE: CASE EVENT DATE: 20140714
